FAERS Safety Report 14769059 (Version 2)
Quarter: 2018Q2

REPORT INFORMATION
  Report Type: Spontaneous
  Country: GB (occurrence: GB)
  Receive Date: 20180417
  Receipt Date: 20180420
  Transmission Date: 20180711
  Serious: Yes (Other)
  Sender: FDA-Public Use
  Company Number: GB-PFIZER INC-2018152568

PATIENT
  Age: 47 Year
  Sex: Female

DRUGS (3)
  1. HYDROXYUREA. [Concomitant]
     Active Substance: HYDROXYUREA
     Indication: PSORIASIS
     Dosage: UNK, (BETWEEN MARCH, 1979, AND NOVEMBER,1980)
  2. RAZOXANE [Suspect]
     Active Substance: DEXRAZOXANE
     Indication: PSORIASIS
     Dosage: UNK, (625-1125 MG/WEEK)
     Dates: start: 198011
  3. METHOTREXATE SODIUM. [Suspect]
     Active Substance: METHOTREXATE SODIUM
     Indication: PSORIASIS
     Dosage: UNK, (BETWEEN MARCH, 1979, AND NOVEMBER,1980)

REACTIONS (1)
  - Acute myeloid leukaemia [Unknown]
